FAERS Safety Report 18496264 (Version 2)
Quarter: 2021Q2

REPORT INFORMATION
  Report Type: Spontaneous
  Country: US (occurrence: US)
  Receive Date: 20201112
  Receipt Date: 20210420
  Transmission Date: 20210717
  Serious: No
  Sender: FDA-Public Use
  Company Number: US-GILEAD-2020-0502589

PATIENT
  Age: 62 Year
  Sex: Male

DRUGS (9)
  1. SOFOSBUVIR;VELPATASVIR [Suspect]
     Active Substance: SOFOSBUVIR\VELPATASVIR
     Indication: CHRONIC HEPATITIS C
     Dosage: 1 DOSAGE FORM, QD
     Route: 048
     Dates: start: 20201021
  2. GUAIFENESIN;HYDROCODONE [Concomitant]
  3. TUMERIC [Concomitant]
     Active Substance: HERBALS\TURMERIC
  4. GABAPENTIN. [Concomitant]
     Active Substance: GABAPENTIN
  5. MELOXICAM. [Concomitant]
     Active Substance: MELOXICAM
  6. CALCIUM + MAGNESIUM [Concomitant]
     Active Substance: CALCIUM\MAGNESIUM
  7. OMEPRAZOLE. [Concomitant]
     Active Substance: OMEPRAZOLE
  8. ASPIRIN [ACETYLSALICYLIC ACID] [Concomitant]
     Active Substance: ASPIRIN
  9. MILK THISTLE [SILYBUM MARIANUM] [Concomitant]
     Active Substance: DIETARY SUPPLEMENT\HERBALS\MILK THISTLE

REACTIONS (6)
  - Memory impairment [Unknown]
  - Dehydration [Recovered/Resolved]
  - Dizziness [Recovered/Resolved]
  - Product dose omission issue [Recovered/Resolved]
  - Nausea [Recovered/Resolved]
  - Headache [Recovered/Resolved]
